FAERS Safety Report 8561576-6 (Version None)
Quarter: 2012Q3

REPORT INFORMATION
  Report Type: 
  Country: None (occurrence: None)
  Receive Date: 20120802
  Receipt Date: 20120726
  Transmission Date: 20120928
  Serious: Yes (Hospitalization)
  Sender: FDA-Public Use
  Company Number: US-PFIZER INC-2012182716

PATIENT
  Age: 76 Year
  Sex: Male
  Weight: 65 kg

DRUGS (20)
  1. SIMVASTATIN [Concomitant]
     Dosage: 40 MG, 1X/DAY
  2. HEPARIN [Concomitant]
     Indication: THROMBOSIS PROPHYLAXIS
     Dosage: 5,000 UNITS TWICE DAILY
  3. ACETAMINOPHEN [Concomitant]
     Dosage: 650 MG, 4X/DAY, AS NEEDED
  4. CARVEDILOL [Concomitant]
     Dosage: 3.125 MG, 2X/DAY
  5. CODEINE [Concomitant]
     Dosage: 30 MG, AS NEEDED
  6. OMEPRAZOLE [Concomitant]
     Dosage: 40 MG, 1X/DAY
  7. TEMAZEPAM [Concomitant]
     Dosage: 15 MG, AT BEDTIME
  8. MEROPENEM [Interacting]
     Indication: SEPSIS
     Dosage: 1 G, 1X/DAY
  9. LINEZOLID [Suspect]
     Dosage: 600 MG, 2X/DAY
     Route: 042
  10. INSULIN [Concomitant]
     Dosage: SLIDING SCALE
  11. MEGESTROL [Concomitant]
     Dosage: 675 MG, 2X/DAY
  12. MULTI-VITAMIN [Concomitant]
     Dosage: UNK, ONCE DAILY
  13. LACTOBACILLUS ACIDOPHILUS [Concomitant]
     Indication: CLOSTRIDIAL INFECTION
     Dosage: 2 DF, 2X/DAY
  14. ACETAMINOPHEN [Concomitant]
     Indication: PAIN
     Dosage: 600 MG, AS NEEDED
  15. CINACALCET [Concomitant]
     Dosage: 30 MG, 1X/DAY
  16. IPRATROPIUM BROMIDE AND ALBUTEROL SULFATE [Concomitant]
     Dosage: 2 PUFFS FOUR TIMES DAILY
  17. MIRTAZAPINE [Concomitant]
     Dosage: 15 MG, 1X/DAY
  18. VANCOMYCIN [Concomitant]
     Dosage: 500 MG, 2X/DAY
     Route: 048
  19. PRAMIPEXOLE [Concomitant]
     Dosage: 0.125 MG, 1X/DAY
  20. SEVELAMER [Concomitant]
     Dosage: 800 MG, 3X/DAY

REACTIONS (2)
  - DRUG INTERACTION [None]
  - THROMBOCYTOPENIA [None]
